FAERS Safety Report 26186990 (Version 1)
Quarter: 2025Q4

REPORT INFORMATION
  Report Type: Spontaneous
  Country: US (occurrence: None)
  Receive Date: 20251222
  Receipt Date: 20251222
  Transmission Date: 20260117
  Serious: Yes (Life-Threatening)
  Sender: FDA-CTU
  Company Number: None

PATIENT
  Sex: Female

DRUGS (1)
  1. ICATIBANT [Suspect]
     Active Substance: ICATIBANT ACETATE
     Indication: Hereditary angioedema
     Dosage: INJECT ONE SYRINGE (30 MG) UNDER THE SKIN (SUBCUTANEOUS INJECTION) AS NEEDED FOR HAE ATTACK. MAY REPEAT EVERY 6 HOURS AS NEEDED. NO MORE THAN 3 DOSES IN 24 HOURS
     Route: 058
     Dates: start: 20250314

REACTIONS (10)
  - Abdominal pain [None]
  - Back pain [None]
  - Diarrhoea [None]
  - Dizziness [None]
  - Pyrexia [None]
  - Injection site reaction [None]
  - Lipoma [None]
  - Nasopharyngitis [None]
  - Nausea [None]
  - Taste disorder [None]
